FAERS Safety Report 8561634-6 (Version None)
Quarter: 2012Q3

REPORT INFORMATION
  Report Type: 
  Country: None (occurrence: None)
  Receive Date: 20120727
  Receipt Date: 20120727
  Transmission Date: 20120928
  Serious: Yes (Other)
  Sender: FDA-Public Use
  Company Number: None

PATIENT
  Sex: Male

DRUGS (1)
  1. ETANERCEPT  50MG/ML  ENBREL- [Suspect]
     Indication: ANKYLOSING SPONDYLITIS
     Dosage: WEEKLY	-    SQ
     Route: 058
     Dates: start: 20111018, end: 20120726

REACTIONS (2)
  - GROIN ABSCESS [None]
  - PERITONSILLAR ABSCESS [None]
